FAERS Safety Report 8305402-9 (Version None)
Quarter: 2012Q2

REPORT INFORMATION
  Report Type: 
  Country: None (occurrence: None)
  Receive Date: 20120423
  Receipt Date: 20120420
  Transmission Date: 20120825
  Serious: Yes (Life-Threatening, Hospitalization)
  Sender: FDA-Public Use
  Company Number: AU-SANOFI-AVENTIS-2012SA023095

PATIENT
  Age: 71 Year
  Sex: Female

DRUGS (9)
  1. IMDUR [Concomitant]
  2. CITALOPRAM HYDROBROMIDE [Concomitant]
  3. NOVORAPID [Concomitant]
  4. NIFEDIPINE [Concomitant]
  5. EZETIMIBE [Concomitant]
  6. ASPIRIN [Concomitant]
  7. AVAPRO [Concomitant]
  8. LANTUS [Suspect]
     Route: 058
     Dates: start: 20100101
  9. PLAVIX [Concomitant]

REACTIONS (3)
  - PLEURAL EFFUSION [None]
  - AORTIC VALVE REPLACEMENT [None]
  - CORONARY ARTERY BYPASS [None]
